FAERS Safety Report 8926132 (Version 2)
Quarter: 2012Q4

REPORT INFORMATION
  Report Type: 
  Country: BE (occurrence: BE)
  Receive Date: 20121126
  Receipt Date: 20121220
  Transmission Date: 20130627
  Serious: Yes (Hospitalization, Other)
  Sender: FDA-Public Use
  Company Number: BE-JNJFOC-20121108075

PATIENT
  Age: 68 Year
  Sex: Female

DRUGS (3)
  1. XARELTO [Suspect]
     Indication: THROMBOSIS PROPHYLAXIS
     Route: 048
     Dates: start: 20120912, end: 20120921
  2. XARELTO [Suspect]
     Indication: KNEE ARTHROPLASTY
     Route: 048
     Dates: start: 20120912, end: 20120921
  3. MAALOX [Concomitant]
     Indication: PRODUCT USED FOR UNKNOWN INDICATION
     Route: 065

REACTIONS (4)
  - Pulmonary embolism [Unknown]
  - Drug ineffective [Unknown]
  - Tachycardia [Unknown]
  - Asthenia [Unknown]
